FAERS Safety Report 8547186-5 (Version None)
Quarter: 2012Q3

REPORT INFORMATION
  Report Type: 
  Country: None (occurrence: None)
  Receive Date: 20120727
  Receipt Date: 20120224
  Transmission Date: 20120928
  Serious: No
  Sender: FDA-Public Use
  Company Number: US-ASTRAZENECA-2012SE13174

PATIENT
  Age: 36 Year
  Sex: Female
  Weight: 56.7 kg

DRUGS (2)
  1. SEROQUEL [Suspect]
     Indication: SCHIZOPHRENIA
     Route: 048
     Dates: start: 20120118
  2. ALPRAZOLAM [Suspect]
     Indication: ANXIETY
     Route: 065
     Dates: start: 20060101

REACTIONS (1)
  - DRUG SCREEN POSITIVE [None]
